FAERS Safety Report 4425593-X (Version None)
Quarter: 2004Q3

REPORT INFORMATION
  Report Type: 
  Country: None (occurrence: None)
  Receive Date: 20040810
  Receipt Date: 20040728
  Transmission Date: 20050211
  Serious: Yes (Hospitalization)
  Sender: FDA-Public Use
  Company Number: SO4-USA-04007-01

PATIENT
  Age: 54 Year
  Sex: Female
  Weight: 61.2356 kg

DRUGS (4)
  1. LEXAPRO [Suspect]
     Indication: DEPRESSION
     Dosage: 10 MG QD PO
     Route: 048
     Dates: start: 20040101, end: 20040416
  2. BENICAR [Suspect]
     Indication: HYPERTENSION
     Dates: start: 20031230, end: 20040415
  3. HYDROCHLOROTHIAZIDE [Suspect]
     Indication: HYPERTENSION
     Dates: start: 20040401
  4. DIOVAN [Concomitant]

REACTIONS (10)
  - ANAEMIA [None]
  - BASOPHIL COUNT INCREASED [None]
  - BLOOD CALCIUM DECREASED [None]
  - BLOOD CHLORIDE DECREASED [None]
  - BLOOD CREATININE DECREASED [None]
  - BLOOD UREA DECREASED [None]
  - HAEMOPTYSIS [None]
  - HYPONATRAEMIA [None]
  - LOBAR PNEUMONIA [None]
  - WHITE BLOOD CELL COUNT INCREASED [None]
